FAERS Safety Report 6577781-4 (Version None)
Quarter: 2010Q1

REPORT INFORMATION
  Report Type: 
  Country: None (occurrence: None)
  Receive Date: 20100211
  Receipt Date: 20100201
  Transmission Date: 20100710
  Serious: Yes (Hospitalization, Disabling)
  Sender: FDA-Public Use
  Company Number: JP-BAYER-200812251BYL

PATIENT
  Age: 62 Year
  Sex: Male
  Weight: 70 kg

DRUGS (4)
  1. NEXAVAR [Suspect]
     Indication: RENAL CELL CARCINOMA
     Dosage: TOTAL DAILY DOSE: 800 MG  UNIT DOSE: 200 MG
     Route: 048
     Dates: start: 20080701, end: 20080718
  2. ZYLORIC [Concomitant]
     Indication: HYPERURICAEMIA
     Dosage: AS USED: 200 MG
     Route: 048
     Dates: start: 20080701
  3. LOXONIN [Concomitant]
     Indication: CANCER PAIN
     Dosage: UNIT DOSE: 60 MG
     Route: 048
     Dates: start: 20080701
  4. MUCOSTA [Concomitant]
     Route: 048
     Dates: start: 20080701

REACTIONS (4)
  - FEMORAL NECK FRACTURE [None]
  - HYPOCALCAEMIA [None]
  - HYPOPHOSPHATAEMIA [None]
  - PULMONARY HAEMORRHAGE [None]
